FAERS Safety Report 5379899-0 (Version None)
Quarter: 2007Q2

REPORT INFORMATION
  Report Type: 
  Country: None (occurrence: None)
  Receive Date: 20070530
  Receipt Date: 20070303
  Transmission Date: 20071010
  Serious: No
  Sender: FDA-Public Use
  Company Number: 2007PV030990

PATIENT
  Age: 54 Year
  Sex: Female
  Weight: 96.1626 kg

DRUGS (5)
  1. BYETTA [Suspect]
     Indication: DIABETES MELLITUS NON-INSULIN-DEPENDENT
     Dosage: 5 MCG;BID;SC
     Route: 058
     Dates: start: 20060701
  2. AVANDIA [Concomitant]
  3. GLUCOVANCE [Concomitant]
  4. LIPITOR [Concomitant]
  5. PRINIVIL [Concomitant]

REACTIONS (5)
  - ABDOMINAL PAIN UPPER [None]
  - DUODENITIS [None]
  - GASTRITIS [None]
  - LIPASE INCREASED [None]
  - WEIGHT DECREASED [None]
